FAERS Safety Report 20966387 (Version 1)
Quarter: 2022Q2

REPORT INFORMATION
  Report Type: Spontaneous
  Country: US (occurrence: None)
  Receive Date: 20220615
  Receipt Date: 20220615
  Transmission Date: 20220720
  Serious: No
  Sender: FDA-Public Use
  Company Number: None

PATIENT
  Age: 76 Year
  Sex: Female
  Weight: 72.45 kg

DRUGS (19)
  1. REPATHA [Suspect]
     Active Substance: EVOLOCUMAB
     Indication: Blood cholesterol increased
     Dosage: OTHER QUANTITY : 1 INJECTION(S);?OTHER FREQUENCY : TWICE A MONTH;?
     Route: 030
     Dates: start: 20190313, end: 20220615
  2. SYNTHROID [Concomitant]
     Active Substance: LEVOTHYROXINE SODIUM
  3. Eylea eye injections [Concomitant]
  4. ZYRTEC [Concomitant]
     Active Substance: CETIRIZINE HYDROCHLORIDE
  5. OMEPRAZOLE [Concomitant]
     Active Substance: OMEPRAZOLE
  6. Lisinapril 10 mg [Concomitant]
  7. DEVICE [Concomitant]
     Active Substance: DEVICE
  8. CoEnzyme Q 10 [Concomitant]
  9. VITAMINS [Concomitant]
     Active Substance: VITAMINS
  10. PROBIOTICS NOS [Concomitant]
     Active Substance: PROBIOTICS NOS
  11. VITAMIN D3 [Concomitant]
     Active Substance: CHOLECALCIFEROL
  12. VITAMIN E [Concomitant]
     Active Substance: .ALPHA.-TOCOPHEROL
  13. CALCIUM [Concomitant]
     Active Substance: CALCIUM
  14. MAGNESIUM [Concomitant]
     Active Substance: MAGNESIUM
  15. COLLAGEN [Concomitant]
     Active Substance: COLLAGEN
  16. ASPIRIN [Concomitant]
     Active Substance: ASPIRIN
  17. Pea protein [Concomitant]
  18. eye ointment [Concomitant]
  19. TYLENOL [Concomitant]
     Active Substance: ACETAMINOPHEN

REACTIONS (8)
  - Drug hypersensitivity [None]
  - Dysphonia [None]
  - Urinary tract infection [None]
  - Hypersensitivity [None]
  - Back pain [None]
  - Dysphagia [None]
  - Rash [None]
  - Pruritus [None]

NARRATIVE: CASE EVENT DATE: 20220610
